FAERS Safety Report 23974086 (Version 1)
Quarter: 2024Q2

REPORT INFORMATION
  Report Type: Report from Study
  Country: US (occurrence: US)
  Receive Date: 20240614
  Receipt Date: 20240614
  Transmission Date: 20240715
  Serious: Yes (Other)
  Sender: FDA-Public Use
  Company Number: US-ABBVIE-5742660

PATIENT
  Age: 55 Year
  Sex: Female
  Weight: 89.357 kg

DRUGS (13)
  1. HUMIRA [Suspect]
     Active Substance: ADALIMUMAB
     Indication: Rheumatoid arthritis
     Dosage: FORM STRENGTH: 40 MG
     Route: 058
     Dates: start: 2023, end: 202404
  2. HUMIRA [Suspect]
     Active Substance: ADALIMUMAB
     Dosage: FORM STRENGTH: 40 MG
     Route: 058
     Dates: start: 2019
  3. SERTRALINE [Concomitant]
     Active Substance: SERTRALINE HYDROCHLORIDE
     Indication: Bipolar II disorder
     Route: 048
     Dates: start: 2010
  4. NOVOLOG [Concomitant]
     Active Substance: INSULIN ASPART
     Indication: Type 1 diabetes mellitus
     Dosage: 70 U/D INJECTABLE
     Route: 058
     Dates: start: 1989, end: 2024
  5. FOLIC ACID [Concomitant]
     Active Substance: FOLIC ACID
     Indication: Vitamin supplementation
     Dosage: FORM STRENGTH: 1 MG
     Route: 048
     Dates: start: 2019
  6. EZETIMIBE [Concomitant]
     Active Substance: EZETIMIBE
     Indication: Blood cholesterol
     Route: 048
     Dates: start: 2023
  7. ROSUVASTATIN [Concomitant]
     Active Substance: ROSUVASTATIN
     Indication: Blood cholesterol
     Route: 048
     Dates: start: 2000
  8. ABILIFY [Concomitant]
     Active Substance: ARIPIPRAZOLE
     Indication: Mood altered
     Dosage: FORM STRENGTH: 7.5 MG
     Route: 048
  9. DULOXETINE [Concomitant]
     Active Substance: DULOXETINE
     Indication: Bipolar II disorder
     Dosage: 60+30 MG
     Route: 048
     Dates: start: 2000
  10. BUSPAR [Concomitant]
     Active Substance: BUSPIRONE HYDROCHLORIDE
     Indication: Depression
     Dosage: TIME INTERVAL: 0.33333333 DAYS
     Dates: start: 2000
  11. LEVOXYL [Concomitant]
     Active Substance: LEVOTHYROXINE SODIUM
     Indication: Hypothyroidism
     Dosage: FORM STRENGTH: 200 MG
     Route: 048
     Dates: start: 1999
  12. LYRICA [Concomitant]
     Active Substance: PREGABALIN
     Indication: Pain
     Dosage: FORM STRENGTH: 400 MG
     Route: 048
     Dates: start: 2019
  13. CALCIUM CARBONATE [Concomitant]
     Active Substance: CALCIUM CARBONATE
     Indication: Blood calcium decreased
     Route: 048
     Dates: start: 2005

REACTIONS (6)
  - Cervical radiculopathy [Recovered/Resolved]
  - Fall [Unknown]
  - Spinal fusion surgery [Recovering/Resolving]
  - Headache [Not Recovered/Not Resolved]
  - Neck pain [Not Recovered/Not Resolved]
  - Neuralgia [Unknown]

NARRATIVE: CASE EVENT DATE: 20230501
